FAERS Safety Report 17398407 (Version 1)
Quarter: 2020Q1

REPORT INFORMATION
  Report Type: Spontaneous
  Country: US (occurrence: US)
  Receive Date: 20200210
  Receipt Date: 20200210
  Transmission Date: 20200409
  Serious: No
  Sender: FDA-Public Use
  Company Number: US-VAYAPHARMA-2018-US-014493

PATIENT
  Sex: Female

DRUGS (1)
  1. VAYARIN PLUS [Suspect]
     Active Substance: DOCONEXENT\ICOSAPENT\PHOSPHATIDYL SERINE
     Indication: ATTENTION DEFICIT/HYPERACTIVITY DISORDER
     Dosage: 1-2 CAPS
     Route: 048

REACTIONS (3)
  - Abdominal pain upper [Recovering/Resolving]
  - Intentional product misuse [Unknown]
  - Intentional product use issue [Unknown]
